FAERS Safety Report 4604954-X (Version None)
Quarter: 2005Q1

REPORT INFORMATION
  Report Type: 
  Country: None (occurrence: None)
  Receive Date: 20050309
  Receipt Date: 20050309
  Transmission Date: 20050727
  Serious: Yes (Other)
  Sender: FDA-Public Use
  Company Number: None

PATIENT
  Age: 42 Year
  Sex: Male
  Weight: 68.0396 kg

DRUGS (7)
  1. BUSPAR [Suspect]
     Indication: ANXIETY
     Dosage: 10 MG , TWICE DAILY
     Dates: start: 20040201, end: 20040215
  2. TAGAMET [Concomitant]
  3. VISTARIL [Concomitant]
  4. KLONOPIN [Concomitant]
  5. SAW PALMETTO [Concomitant]
  6. CITRUCEL [Concomitant]
  7. CARDURA [Concomitant]

REACTIONS (5)
  - DIZZINESS [None]
  - DRUG INEFFECTIVE [None]
  - FATIGUE [None]
  - INSOMNIA [None]
  - PHARMACEUTICAL PRODUCT COMPLAINT [None]
